FAERS Safety Report 7505383-1 (Version None)
Quarter: 2011Q2

REPORT INFORMATION
  Report Type: 
  Country: None (occurrence: None)
  Receive Date: 20110526
  Receipt Date: 20091114
  Transmission Date: 20111010
  Serious: Yes (Death, Other)
  Sender: FDA-Public Use
  Company Number: US-BAYER-200939469NA

PATIENT
  Age: 79 Year
  Sex: Male
  Weight: 93 kg

DRUGS (10)
  1. AMIODARONE HCL [Concomitant]
     Dosage: 150 MG, UNK
     Route: 042
     Dates: start: 20050316, end: 20050316
  2. EPINEPHRINE [Concomitant]
     Dosage: 0.03ML TO 0.05ML PER HOUR CONTINUOUS INFUSION
     Route: 042
     Dates: start: 20050316, end: 20050316
  3. ROCEPHIN [Concomitant]
     Dosage: 1 G, UNK
     Route: 042
     Dates: start: 20050316, end: 20050316
  4. TRASYLOL [Suspect]
     Indication: CORONARY ARTERY BYPASS
     Dosage: 1 ML, INITIAL
     Route: 042
     Dates: start: 20050316, end: 20050316
  5. HEPARIN [Concomitant]
     Dosage: 30000 U, UNK
     Route: 042
     Dates: start: 20050316, end: 20050316
  6. TRASYLOL [Suspect]
     Dosage: INFUSION INITIATED AT 40ML PER HOUR FOR 30 MINUTES. THEN 50ML/HR FOR 5 HRS
     Route: 042
     Dates: start: 20050316, end: 20050316
  7. NITROGLYCERIN [Concomitant]
     Dosage: 1MCG/KG/MIN (0.5ML TO 1ML PER HOUR)
     Route: 042
     Dates: start: 20050316, end: 20050316
  8. MEVACOR [Concomitant]
     Dosage: 1 TABLET DAILY
     Route: 048
  9. ANCEF [Concomitant]
     Dosage: 1 G, UNK
     Route: 042
     Dates: start: 20050316, end: 20050316
  10. HYDROCHLOROTHIAZIDE [Concomitant]
     Dosage: 1 TABLET DAILY
     Route: 048

REACTIONS (7)
  - RENAL FAILURE ACUTE [None]
  - INJURY [None]
  - PAIN [None]
  - UNEVALUABLE EVENT [None]
  - DEATH [None]
  - RENAL FAILURE [None]
  - RENAL IMPAIRMENT [None]
